FAERS Safety Report 13986672 (Version 2)
Quarter: 2018Q1

REPORT INFORMATION
  Report Type: Spontaneous
  Country: JP (occurrence: JP)
  Receive Date: 20170919
  Receipt Date: 20180313
  Transmission Date: 20180508
  Serious: Yes (Death)
  Sender: FDA-Public Use
  Company Number: JP-ACTELION-A-CH2017-159336

PATIENT
  Age: 66 Year
  Sex: Female

DRUGS (16)
  1. THYRADIN [Concomitant]
     Active Substance: LEVOTHYROXINE
  2. VASOLAN [Concomitant]
     Active Substance: VERAPAMIL HYDROCHLORIDE
  3. PREDONINE [Concomitant]
     Active Substance: PREDNISOLONE
  4. UNIPHYL [Concomitant]
     Active Substance: THEOPHYLLINE ANHYDROUS
  5. ALENDRONATE [Concomitant]
     Active Substance: ALENDRONATE SODIUM
  6. OPSUMIT [Suspect]
     Active Substance: MACITENTAN
     Indication: PULMONARY ARTERIAL HYPERTENSION
     Dosage: 10 MG, QD
     Route: 048
     Dates: start: 20170526, end: 20170828
  7. FUROSEMIDE. [Concomitant]
     Active Substance: FUROSEMIDE
  8. ENALAPRIL [Concomitant]
     Active Substance: ENALAPRIL
  9. CRESTOR [Concomitant]
     Active Substance: ROSUVASTATIN CALCIUM
  10. ASPARA POTASSIUM [Concomitant]
     Active Substance: POTASSIUM ASPARTATE
  11. TAKELDA [Concomitant]
     Active Substance: ASPIRIN\LANSOPRAZOLE
  12. PREDNISOLONE. [Concomitant]
     Active Substance: PREDNISOLONE
  13. SELARA [Concomitant]
     Active Substance: EPLERENONE
  14. FEBURIC [Concomitant]
     Active Substance: FEBUXOSTAT
  15. BISOPROLOL [Concomitant]
     Active Substance: BISOPROLOL
  16. WARFARIN [Concomitant]
     Active Substance: WARFARIN

REACTIONS (1)
  - Sudden death [Fatal]

NARRATIVE: CASE EVENT DATE: 20170828
